FAERS Safety Report 5932914-5 (Version None)
Quarter: 2008Q4

REPORT INFORMATION
  Report Type: 
  Country: None (occurrence: None)
  Receive Date: 20081027
  Receipt Date: 20081027
  Transmission Date: 20090506
  Serious: Yes (Congenital Anomaly)
  Sender: FDA-Public Use
  Company Number: None

PATIENT
  Age: 1 Day
  Sex: Male
  Weight: 3.1752 kg

DRUGS (1)
  1. MERCAPTOPURINE [Suspect]
     Indication: CROHN'S DISEASE
     Dosage: 100MG QD PO
     Route: 048
     Dates: start: 20050201, end: 20081024

REACTIONS (3)
  - CRANIOSYNOSTOSIS [None]
  - PATERNAL DRUGS AFFECTING FOETUS [None]
  - PSYCHOMOTOR SKILLS IMPAIRED [None]
